FAERS Safety Report 17456280 (Version 2)
Quarter: 2020Q1

REPORT INFORMATION
  Report Type: Spontaneous
  Country: BR (occurrence: BR)
  Receive Date: 20200225
  Receipt Date: 20200320
  Transmission Date: 20200409
  Serious: Yes (Life-Threatening)
  Sender: FDA-Public Use
  Company Number: NVSC2020BR044492

PATIENT
  Sex: Female

DRUGS (1)
  1. ENALAPRIL MALEATE. [Suspect]
     Active Substance: ENALAPRIL MALEATE
     Indication: CARDIAC DISORDER
     Dosage: UNK (CPR W/30)
     Route: 065

REACTIONS (5)
  - Poor quality product administered [Unknown]
  - Product use in unapproved indication [Unknown]
  - Near death experience [Unknown]
  - Wrong technique in product usage process [Unknown]
  - Product colour issue [Unknown]
